FAERS Safety Report 25250589 (Version 1)
Quarter: 2025Q2

REPORT INFORMATION
  Report Type: Report from Study
  Country: JP (occurrence: JP)
  Receive Date: 20250429
  Receipt Date: 20250429
  Transmission Date: 20250716
  Serious: Yes (Death, Hospitalization, Other)
  Sender: OTSUKA
  Company Number: JP-MMM-Otsuka-IO6E3NQL

PATIENT
  Age: 83 Year
  Sex: Male
  Weight: 45.9 kg

DRUGS (9)
  1. TOLVAPTAN [Suspect]
     Active Substance: TOLVAPTAN
     Indication: Inappropriate antidiuretic hormone secretion
     Dosage: 7.5 MG/DAY, ONCE DAILY, IN THE MORNING, DAILY DOSING
     Route: 048
     Dates: start: 20250114, end: 20250118
  2. TOLVAPTAN [Suspect]
     Active Substance: TOLVAPTAN
     Indication: Hyponatraemia
     Dosage: 3.75 MG/DAY, ONCE DAILY, IN THE MORNING, DAILY DOSING
     Route: 048
     Dates: start: 20250113, end: 20250113
  3. TOLVAPTAN [Suspect]
     Active Substance: TOLVAPTAN
     Dosage: 15 MG/DAY, ONCE DAILY, IN THE MORNING, DAILY DOSING
     Route: 048
     Dates: start: 20250119, end: 20250119
  4. TOLVAPTAN [Suspect]
     Active Substance: TOLVAPTAN
     Dosage: 7.5 MG/DAY, ONCE DAILY, IN THE MORNING, DAILY DOSING
     Route: 048
     Dates: start: 20250120, end: 20250128
  5. ACETAMINOPHEN [Concomitant]
     Active Substance: ACETAMINOPHEN
     Indication: Product used for unknown indication
     Route: 041
     Dates: start: 20250114, end: 20250131
  6. AMPICILLIN SODIUM\SULBACTAM SODIUM [Concomitant]
     Active Substance: AMPICILLIN SODIUM\SULBACTAM SODIUM
     Indication: Product used for unknown indication
     Route: 042
     Dates: start: 20250114, end: 20250117
  7. OMEPRAZOLE SODIUM [Concomitant]
     Active Substance: OMEPRAZOLE SODIUM
     Indication: Prophylaxis
     Route: 042
     Dates: start: 20250114, end: 20250131
  8. PIPERACILLIN SODIUM\TAZOBACTAM SODIUM [Concomitant]
     Active Substance: PIPERACILLIN SODIUM\TAZOBACTAM SODIUM
     Indication: Product used for unknown indication
     Route: 042
     Dates: start: 20250118, end: 20250201
  9. BROMHEXINE HYDROCHLORIDE [Concomitant]
     Active Substance: BROMHEXINE HYDROCHLORIDE
     Indication: Product used for unknown indication
     Route: 042
     Dates: start: 20250119, end: 20250131

REACTIONS (5)
  - Interstitial lung disease [Fatal]
  - Cervical vertebral fracture [Not Recovered/Not Resolved]
  - Adverse event [Unknown]
  - Fall [Unknown]
  - Blood sodium increased [Unknown]

NARRATIVE: CASE EVENT DATE: 20250114
